FAERS Safety Report 8459703 (Version 3)
Quarter: 2014Q2

REPORT INFORMATION
  Report Type: Spontaneous
  Country: US (occurrence: US)
  Receive Date: 20120314
  Receipt Date: 20140611
  Transmission Date: 20141212
  Serious: Yes (Other)
  Sender: FDA-Public Use
  Company Number: US-ASTRAZENECA-2011SE10374

PATIENT
  Age: 41 Year
  Sex: Male
  Weight: 114.3 kg

DRUGS (6)
  1. NEXIUM [Suspect]
     Indication: GASTROINTESTINAL DISORDER
     Route: 048
     Dates: start: 2010, end: 2010
  2. LISINOPRIL [Suspect]
     Route: 048
     Dates: end: 2010
  3. LISINOPRIL [Suspect]
     Route: 048
     Dates: start: 2010, end: 2014
  4. TOPROL XL [Suspect]
     Indication: HYPERTENSION
     Route: 048
     Dates: start: 20100416, end: 2014
  5. TOPROL XL [Suspect]
     Indication: HYPERTENSION
     Dosage: GENERIC
     Route: 065
  6. ASPIRIN [Concomitant]
     Indication: HYPERTENSION
     Route: 048

REACTIONS (8)
  - Myocardial infarction [Unknown]
  - Aphagia [Not Recovered/Not Resolved]
  - Abdominal discomfort [Unknown]
  - Off label use [Recovered/Resolved]
  - Circumstance or information capable of leading to medication error [Unknown]
  - Drug dose omission [Unknown]
  - Drug effect incomplete [Unknown]
  - Drug ineffective [Unknown]
